FAERS Safety Report 4716109-9 (Version None)
Quarter: 2005Q3

REPORT INFORMATION
  Report Type: 
  Country: None (occurrence: None)
  Receive Date: 20050712
  Receipt Date: 20050215
  Transmission Date: 20060218
  Serious: Yes (Disabling)
  Sender: FDA-Public Use
  Company Number: M-05-069

PATIENT
  Sex: Male

DRUGS (1)
  1. AMIODARONE HCL [Suspect]
     Dosage: PO
     Route: 048
     Dates: start: 20000101, end: 20030301

REACTIONS (1)
  - PULMONARY TOXICITY [None]
